FAERS Safety Report 6647202-1 (Version None)
Quarter: 2010Q1

REPORT INFORMATION
  Report Type: 
  Country: None (occurrence: None)
  Receive Date: 20100323
  Receipt Date: 20100315
  Transmission Date: 20100710
  Serious: Yes (Hospitalization)
  Sender: FDA-Public Use
  Company Number: A0789957A

PATIENT
  Age: 58 Year
  Sex: Female
  Weight: 65.9 kg

DRUGS (1)
  1. AVANDIA [Suspect]
     Dosage: 2MG PER DAY
     Route: 048
     Dates: start: 19990101, end: 20060103

REACTIONS (6)
  - ARTERIOSCLEROSIS [None]
  - HYPERTENSION [None]
  - MACULAR OEDEMA [None]
  - MYOCARDIAL INFARCTION [None]
  - PERIPHERAL VASCULAR DISORDER [None]
  - THROMBOSIS [None]
